FAERS Safety Report 19173790 (Version 2)
Quarter: 2021Q3

REPORT INFORMATION
  Report Type: Other
  Country: US (occurrence: US)
  Receive Date: 20210423
  Receipt Date: 20210804
  Transmission Date: 20211014
  Serious: Yes (Other)
  Sender: FDA-Public Use
  Company Number: US-ROCHE-2811703

PATIENT

DRUGS (2)
  1. PEGINTERFERON ALFA?2A. [Suspect]
     Active Substance: PEGINTERFERON ALFA-2A
     Indication: ESSENTIAL THROMBOCYTHAEMIA
  2. PEGINTERFERON ALFA?2A. [Suspect]
     Active Substance: PEGINTERFERON ALFA-2A
     Indication: POLYCYTHAEMIA VERA
     Route: 065

REACTIONS (7)
  - Anxiety [Unknown]
  - Malaise [Unknown]
  - Dizziness [Unknown]
  - Antiphospholipid syndrome [Unknown]
  - Transaminases increased [Recovered/Resolved]
  - Injection site reaction [Unknown]
  - Depression [Unknown]
